FAERS Safety Report 8316771 (Version 3)
Quarter: 2014Q1

REPORT INFORMATION
  Report Type: Spontaneous
  Country: US (occurrence: US)
  Receive Date: 20111230
  Receipt Date: 20140320
  Transmission Date: 20141002
  Serious: Yes (Hospitalization)
  Sender: FDA-Public Use
  Company Number: US-BAYER-2011-123173

PATIENT
  Age: 28 Year
  Sex: Female
  Weight: 63.49 kg

DRUGS (4)
  1. YASMIN [Suspect]
     Indication: CONTRACEPTION
     Dosage: UNK
     Dates: start: 20090716, end: 20100105
  2. VICODIN [Concomitant]
     Indication: PAIN
     Dosage: 5-500MG/1 EVERY 6 HOURS AS NEEDED
     Route: 048
  3. AMOXICILLIN [Concomitant]
     Dosage: 500 MG, TID
     Route: 048
  4. FLUCONAZOLE [Concomitant]
     Dosage: 150 MG, SINGLE DOSE
     Route: 048

REACTIONS (4)
  - Cholelithiasis [None]
  - Abdominal pain upper [None]
  - Mental disorder [None]
  - Cholecystitis chronic [None]
